FAERS Safety Report 7594737-3 (Version None)
Quarter: 2011Q3

REPORT INFORMATION
  Report Type: 
  Country: None (occurrence: None)
  Receive Date: 20110707
  Receipt Date: 20110628
  Transmission Date: 20111222
  Serious: Yes (Other)
  Sender: FDA-Public Use
  Company Number: JP-NOVOPROD-330135

PATIENT
  Age: 76 Year
  Sex: Female
  Weight: 60 kg

DRUGS (4)
  1. VICTOZA [Suspect]
     Indication: TYPE 2 DIABETES MELLITUS
     Dosage: 0.3 MG, QD
     Route: 058
     Dates: start: 20100927, end: 20101004
  2. METFORMIN HCL [Concomitant]
     Dosage: UNK
     Route: 048
     Dates: start: 20100705, end: 20101004
  3. LIVALO [Concomitant]
     Dosage: UNK
     Route: 048
     Dates: start: 20070623
  4. ZYRTEC [Concomitant]
     Dosage: UNK
     Route: 048
     Dates: start: 20070323

REACTIONS (1)
  - DIABETIC KETOACIDOSIS [None]
